FAERS Safety Report 11617632 (Version 2)
Quarter: 2015Q4

REPORT INFORMATION
  Report Type: Spontaneous
  Country: FR (occurrence: FR)
  Receive Date: 20151009
  Receipt Date: 20151109
  Transmission Date: 20160304
  Serious: Yes (Death, Hospitalization, Other)
  Sender: FDA-Public Use
  Company Number: FR-GLAXOSMITHKLINE-FR2015GSK144269

PATIENT
  Age: 80 Year
  Sex: Female
  Weight: 60 kg

DRUGS (10)
  1. MELPHALAN [Suspect]
     Active Substance: MELPHALAN
     Indication: PLASMA CELL MYELOMA
     Dosage: 9 MG/M2, 1D
     Dates: start: 20140401, end: 20140404
  2. BORTEZOMIB [Suspect]
     Active Substance: BORTEZOMIB
     Indication: PLASMA CELL MYELOMA
     Dosage: 1.3 MG/M2, CYC
     Route: 058
  3. OMEPRAZOLE. [Interacting]
     Active Substance: OMEPRAZOLE
     Indication: PROPHYLACTIC CHEMOTHERAPY
     Dosage: 20 MG, QD
  4. SULFAMETHOXAZOLE-TRIMETHOPRIM (SMZ) [Interacting]
     Active Substance: SULFAMETHOXAZOLE\TRIMETHOPRIM
     Indication: PRODUCT USED FOR UNKNOWN INDICATION
  5. ATORVASTATIN [Interacting]
     Active Substance: ATORVASTATIN
     Indication: HYPERCHOLESTEROLAEMIA
     Dosage: UNK
     Dates: end: 20140413
  6. SOTALOL. [Concomitant]
     Active Substance: SOTALOL
     Indication: HYPERTENSION
     Dosage: UNK
     Dates: end: 20140413
  7. CANDESARTAN [Interacting]
     Active Substance: CANDESARTAN
     Indication: HYPERTENSION
     Dosage: UNK
     Dates: end: 20140413
  8. PREDNISONE. [Concomitant]
     Active Substance: PREDNISONE
     Indication: PLASMA CELL MYELOMA
     Dosage: 60 MG/M2, UNK
     Dates: start: 20140401, end: 20140404
  9. VALACICLOVIR [Concomitant]
     Active Substance: VALACYCLOVIR HYDROCHLORIDE
     Indication: PROPHYLACTIC CHEMOTHERAPY
     Dosage: 500 MG, 1D
  10. CALCIUM FOLINATE [Concomitant]
     Active Substance: LEUCOVORIN CALCIUM
     Indication: PROPHYLACTIC CHEMOTHERAPY
     Dosage: 25 MG, 1D

REACTIONS (44)
  - Death [Fatal]
  - Drug interaction [Unknown]
  - Pigmentation disorder [Unknown]
  - Hypersensitivity [Unknown]
  - Blood uric acid decreased [Unknown]
  - Blood potassium decreased [Unknown]
  - Diarrhoea [Unknown]
  - Hyponatraemia [Unknown]
  - Altered state of consciousness [Unknown]
  - Escherichia infection [Unknown]
  - Pneumocystis jirovecii pneumonia [Unknown]
  - Oliguria [Unknown]
  - Glomerular filtration rate decreased [Unknown]
  - Blood albumin decreased [Unknown]
  - Neutrophil count decreased [Unknown]
  - Sepsis [Recovered/Resolved]
  - Hypotension [Unknown]
  - White blood cell count decreased [Unknown]
  - Hyperkalaemia [Unknown]
  - Pyrexia [Unknown]
  - Blood urea increased [Unknown]
  - Neutrophil count increased [Unknown]
  - Acute kidney injury [Recovered/Resolved]
  - Muscular weakness [Unknown]
  - Somnolence [Unknown]
  - Confusional state [Unknown]
  - Blood lactate dehydrogenase increased [Unknown]
  - Anuria [Unknown]
  - Vomiting [Unknown]
  - Chills [Unknown]
  - Blood calcium decreased [Unknown]
  - Blood phosphorus increased [Unknown]
  - Platelet count decreased [Unknown]
  - Back pain [Unknown]
  - Anaemia [Unknown]
  - Candida infection [Unknown]
  - Critical illness polyneuropathy [Not Recovered/Not Resolved]
  - Pancytopenia [Recovered/Resolved]
  - Septic shock [Unknown]
  - Blood creatinine increased [Unknown]
  - Blood sodium decreased [Unknown]
  - Blood potassium increased [Unknown]
  - Procalcitonin increased [Unknown]
  - Haemoglobin decreased [Unknown]

NARRATIVE: CASE EVENT DATE: 20140411
